FAERS Safety Report 24531597 (Version 1)
Quarter: 2024Q4

REPORT INFORMATION
  Report Type: Report from Study
  Country: US (occurrence: US)
  Receive Date: 20241022
  Receipt Date: 20241022
  Transmission Date: 20250114
  Serious: No
  Sender: ROCHE
  Company Number: US-ROCHE-2802124

PATIENT
  Age: 73 Year
  Sex: Female

DRUGS (23)
  1. PULMOZYME [Suspect]
     Active Substance: DORNASE ALFA
     Indication: Bronchiectasis
     Dosage: NEBULIZE THE CONTENTS OF 1 VIAL(S) EVERY DAY
     Route: 065
  2. PULMOZYME [Suspect]
     Active Substance: DORNASE ALFA
     Indication: Selective IgA immunodeficiency
     Route: 055
  3. PULMOZYME [Suspect]
     Active Substance: DORNASE ALFA
     Indication: Immunodeficiency common variable
     Route: 065
     Dates: start: 20240201
  4. PULMOZYME [Suspect]
     Active Substance: DORNASE ALFA
     Indication: Bronchiectasis
  5. ZYRTEC [Concomitant]
     Active Substance: CETIRIZINE HYDROCHLORIDE
  6. ZITHROMAX [Concomitant]
     Active Substance: AZITHROMYCIN DIHYDRATE
  7. QVAR [Concomitant]
     Active Substance: BECLOMETHASONE DIPROPIONATE
  8. STIOLTO RESPIMAT [Concomitant]
     Active Substance: OLODATEROL HYDROCHLORIDE\TIOTROPIUM BROMIDE MONOHYDRATE
  9. GAMMAGARD [Concomitant]
     Active Substance: HUMAN IMMUNOGLOBULIN G
  10. BENZONATATE [Concomitant]
     Active Substance: BENZONATATE
  11. LIPITOR [Concomitant]
     Active Substance: ATORVASTATIN CALCIUM
  12. VITAMIN B12 [Concomitant]
     Active Substance: CYANOCOBALAMIN
  13. IODINE [Concomitant]
     Active Substance: IODINE
  14. GARLIC [Concomitant]
     Active Substance: GARLIC
  15. ZINC [Concomitant]
     Active Substance: ZINC
  16. VITAMIN C [Concomitant]
     Active Substance: ASCORBIC ACID
  17. HERBALS\TURMERIC [Concomitant]
     Active Substance: HERBALS\TURMERIC
  18. MAGNESIUM [Concomitant]
     Active Substance: MAGNESIUM
  19. MUCINEX [Concomitant]
     Active Substance: GUAIFENESIN
  20. PROVENTIL [Concomitant]
     Active Substance: ALBUTEROL
  21. RESPIMAT (UNK INGREDIENTS) [Concomitant]
  22. TYLENOL [Concomitant]
     Active Substance: ACETAMINOPHEN
  23. BUDESONIDE [Concomitant]
     Active Substance: BUDESONIDE

REACTIONS (5)
  - Off label use [Unknown]
  - Malaise [Unknown]
  - Abdominal discomfort [Unknown]
  - Headache [Unknown]
  - Fear [Unknown]
